FAERS Safety Report 11316621 (Version 2)
Quarter: 2015Q3

REPORT INFORMATION
  Report Type: Spontaneous
  Country: IT (occurrence: IT)
  Receive Date: 20150728
  Receipt Date: 20150729
  Transmission Date: 20151125
  Serious: Yes (Death)
  Sender: FDA-Public Use
  Company Number: IT-CELGENE-ITA-2015074332

PATIENT
  Age: 21 Year
  Sex: Male

DRUGS (4)
  1. PEMETREXED [Concomitant]
     Active Substance: PEMETREXED
     Indication: MEDIASTINUM NEOPLASM
     Dosage: MG/MQ
     Route: 065
  2. RECOMBINANT HUMAN G-CSF [Concomitant]
     Indication: NEOPLASM MALIGNANT
     Route: 065
  3. ROMIDEPSIN [Suspect]
     Active Substance: ROMIDEPSIN
     Indication: MEDIASTINUM NEOPLASM
     Dosage: 3 DOSES. MG/MQ
     Route: 041
  4. ROMIDEPSIN [Suspect]
     Active Substance: ROMIDEPSIN
     Indication: PERIPHERAL T-CELL LYMPHOMA UNSPECIFIED

REACTIONS (1)
  - Mediastinum neoplasm [Fatal]
